FAERS Safety Report 18812627 (Version 3)
Quarter: 2021Q2

REPORT INFORMATION
  Report Type: Report from Study
  Country: None (occurrence: TW)
  Receive Date: 20210130
  Receipt Date: 20210508
  Transmission Date: 20210717
  Serious: Yes (Hospitalization, Other)
  Sender: FDA-Public Use
  Company Number: TW-ABBVIE-21K-153-3753399-00

PATIENT
  Age: 67 Year
  Sex: Male

DRUGS (13)
  1. FAMOTIDINE. [Concomitant]
     Active Substance: FAMOTIDINE
     Indication: GASTROINTESTINAL ULCER
     Dosage: 1 / TAB / BID / PO?MORE THAN 2 YEARS
     Route: 048
     Dates: end: 20210315
  2. IBRUTINIB [Suspect]
     Active Substance: IBRUTINIB
     Dosage: 2# / CAP / QD / PO
     Route: 048
     Dates: start: 20190130, end: 20190804
  3. ZOLPIDEM F.C [Concomitant]
     Indication: INSOMNIA
     Dosage: 1 / TAB / HS / PO?MORE THAN 2 YEARS
     Route: 048
  4. BENZBROMARONE [Concomitant]
     Active Substance: BENZBROMARONE
     Indication: GOUT
     Route: 048
     Dates: start: 20210413
  5. IBRUTINIB [Suspect]
     Active Substance: IBRUTINIB
     Dosage: 1# / CAP / QD / PO
     Route: 048
     Dates: start: 20190102, end: 20190115
  6. IBRUTINIB [Suspect]
     Active Substance: IBRUTINIB
     Dosage: 3# / CAP / QD / PO
     Route: 048
     Dates: start: 20190805, end: 20190929
  7. IBRUTINIB [Suspect]
     Active Substance: IBRUTINIB
     Dosage: 3# / CAP / QD / PO
     Route: 048
     Dates: start: 20190116, end: 20190129
  8. FAMOTIDINE. [Concomitant]
     Active Substance: FAMOTIDINE
     Indication: PEPTIC ULCER
     Dosage: 1 / TAB / BID / PO?MORE THAN 2 YEARS
     Route: 048
  9. IBRUTINIB [Suspect]
     Active Substance: IBRUTINIB
     Indication: MANTLE CELL LYMPHOMA
     Dosage: 3# / CAP / QD / PO
     Route: 048
     Dates: start: 20181212, end: 20190101
  10. IBRUTINIB [Suspect]
     Active Substance: IBRUTINIB
     Dosage: 2# / CAP / QD / PO
     Route: 048
     Dates: start: 20190930, end: 20210215
  11. IBRUTINIB [Suspect]
     Active Substance: IBRUTINIB
     Dosage: 4#/CAP/QD/PO
     Route: 048
     Dates: start: 20210216
  12. ALPRAZOLAM. [Concomitant]
     Active Substance: ALPRAZOLAM
     Indication: MAJOR DEPRESSION
     Dosage: 1 / TAB / BID / PO?MORE THAN 2 YEARS
     Route: 048
  13. MIRTAZAPINE. [Concomitant]
     Active Substance: MIRTAZAPINE
     Indication: INSOMNIA
     Dosage: 1 / TAB / HS / PO?MORE THAN 2 YEARS
     Route: 048

REACTIONS (8)
  - Diabetes mellitus [Not Recovered/Not Resolved]
  - Splenic lesion [Not Recovered/Not Resolved]
  - Hypertension [Not Recovered/Not Resolved]
  - Neck pain [Recovered/Resolved]
  - Off label use [Unknown]
  - Incorrect dose administered [Unknown]
  - Leukopenia [Recovered/Resolved]
  - Cervical cord compression [Recovered/Resolved]

NARRATIVE: CASE EVENT DATE: 20181212
